FAERS Safety Report 9033772 (Version 1)
Quarter: 2013Q1

REPORT INFORMATION
  Report Type: Spontaneous
  Country: US (occurrence: US)
  Receive Date: 20130128
  Receipt Date: 20130128
  Transmission Date: 20140127
  Serious: Yes (Other)
  Sender: FDA-Public Use
  Company Number: US-AMGEN-USASP2012074884

PATIENT
  Age: 81 Year
  Sex: Female
  Weight: 74.83 kg

DRUGS (24)
  1. ENBREL [Suspect]
     Indication: RHEUMATOID ARTHRITIS
     Dosage: 50 MG, QWK
     Route: 058
  2. ATIVAN [Concomitant]
     Dosage: 1 MG, UNK
  3. FLUTICASONE [Concomitant]
     Dosage: SPR 50MCG
  4. FUROSEMIDE [Concomitant]
     Dosage: 20 MG, UNK
  5. METHOTREXATE [Concomitant]
     Dosage: 2.5 MG, UNK
  6. NEURONTIN [Concomitant]
     Dosage: SOL 250/5 ML
  7. ZEMPLAR [Concomitant]
     Dosage: CAP 1 MCG
  8. ALBUTEROL                          /00139501/ [Concomitant]
     Dosage: NEB O.083%
  9. TEMAZEPAM [Concomitant]
     Dosage: 30 MG, UNK
  10. DOCUSATE SOD [Concomitant]
     Dosage: 250 MG, UNK
  11. METHYLPHENIDAT [Concomitant]
     Dosage: 20 MG, ER
  12. POTASSIUM [Concomitant]
     Dosage: 95 MG, UNK
  13. LIDODERM [Concomitant]
     Dosage: DIS 5%
  14. OXYCODONE [Concomitant]
     Dosage: 10 MG, UNK
  15. CLARITIN                           /00413701/ [Concomitant]
     Dosage: 10 MG, UNK
  16. MIRALAX                            /00754501/ [Concomitant]
     Dosage: POW 335O NF
  17. SENNA                              /00142201/ [Concomitant]
     Dosage: 8.6 MG, UNK
  18. VITAMIN C                          /00008001/ [Concomitant]
     Dosage: 500 MG, UNK
  19. CINNAMON                           /01647501/ [Concomitant]
     Dosage: 500 MG, UNK
  20. MULTIVITAMINS, PLAIN [Concomitant]
     Dosage: UNK
  21. FOLIC ACID [Concomitant]
     Dosage: UNK
  22. TYLENOL /00020001/ [Concomitant]
     Dosage: 500 MG, UNK
  23. OMEGA 3 6 9 [Concomitant]
     Dosage: UNK
  24. MUCINEX D [Concomitant]
     Dosage: TAB 120-1200

REACTIONS (3)
  - Neuropathy peripheral [Unknown]
  - Asthenia [Unknown]
  - Muscular weakness [Unknown]
